FAERS Safety Report 6082907-5 (Version None)
Quarter: 2009Q1

REPORT INFORMATION
  Report Type: 
  Country: None (occurrence: None)
  Receive Date: 20090218
  Receipt Date: 20090212
  Transmission Date: 20090719
  Serious: Yes (Hospitalization, Other)
  Sender: FDA-Public Use
  Company Number: CA-ABBOTT-08P-028-0491539-00

PATIENT
  Sex: Male

DRUGS (2)
  1. HUMIRA [Suspect]
     Indication: CROHN'S DISEASE
     Route: 058
     Dates: start: 20081006
  2. IMURAN [Concomitant]
     Indication: DRUG USE FOR UNKNOWN INDICATION

REACTIONS (6)
  - CROHN'S DISEASE [None]
  - FOOD INTOLERANCE [None]
  - GASTROINTESTINAL DISORDER [None]
  - INTESTINAL PERFORATION [None]
  - MOUTH ULCERATION [None]
  - NERVE COMPRESSION [None]
